FAERS Safety Report 16172190 (Version 2)
Quarter: 2019Q2

REPORT INFORMATION
  Report Type: Spontaneous
  Country: SK (occurrence: SK)
  Receive Date: 20190409
  Receipt Date: 20190425
  Transmission Date: 20190711
  Serious: Yes (Death, Hospitalization, Other)
  Sender: FDA-Public Use
  Company Number: SK-ROCHE-2295844

PATIENT
  Age: 71 Year
  Sex: Male
  Weight: 70 kg

DRUGS (1)
  1. ACTILYSE [Suspect]
     Active Substance: ALTEPLASE
     Indication: CEREBROVASCULAR ACCIDENT
     Route: 042

REACTIONS (8)
  - Cerebral ischaemia [Fatal]
  - Brain oedema [Fatal]
  - Cardiovascular disorder [Unknown]
  - Sopor [Fatal]
  - Pneumonia [Unknown]
  - Altered state of consciousness [Fatal]
  - NIH stroke scale score increased [Fatal]
  - Respiratory disorder [Unknown]
